FAERS Safety Report 12772575 (Version 1)
Quarter: 2016Q3

REPORT INFORMATION
  Report Type: Spontaneous
  Country: US (occurrence: US)
  Receive Date: 20160922
  Receipt Date: 20160922
  Transmission Date: 20161109
  Serious: Yes (Hospitalization, Other)
  Sender: FDA-Public Use
  Company Number: US-PURDUE PHARMA-CAN-2016-0007034

PATIENT
  Age: 12 Year
  Sex: Male

DRUGS (9)
  1. RISPERIDONE. [Suspect]
     Active Substance: RISPERIDONE
     Dosage: 1 MG, HS
     Route: 065
  2. MELATONIN [Concomitant]
     Active Substance: MELATONIN
     Indication: INSOMNIA
     Dosage: 5 MG, PRN
     Route: 065
  3. RISPERIDONE. [Suspect]
     Active Substance: RISPERIDONE
     Dosage: 0.5 MG, BID
     Route: 065
  4. VALPROIC ACID. [Suspect]
     Active Substance: VALPROIC ACID
     Dosage: 500 MG, HS
     Route: 065
  5. NON-PMN METHYLPHENIDATE HCL [Suspect]
     Active Substance: METHYLPHENIDATE HYDROCHLORIDE
     Indication: PRODUCT USED FOR UNKNOWN INDICATION
     Dosage: 36 MG, AM
     Route: 065
  6. PRAMIPEXOLE. [Suspect]
     Active Substance: PRAMIPEXOLE
     Indication: PRODUCT USED FOR UNKNOWN INDICATION
     Dosage: 0.125 MG, HS
     Route: 065
  7. PAROXETINE. [Suspect]
     Active Substance: PAROXETINE
     Indication: PRODUCT USED FOR UNKNOWN INDICATION
     Dosage: 40 MG, AM
     Route: 065
  8. RISPERIDONE. [Suspect]
     Active Substance: RISPERIDONE
     Indication: PRODUCT USED FOR UNKNOWN INDICATION
     Dosage: 0.5 MG, AM
     Route: 065
  9. VALPROIC ACID. [Suspect]
     Active Substance: VALPROIC ACID
     Indication: PRODUCT USED FOR UNKNOWN INDICATION
     Dosage: 375 MG, AM
     Route: 065

REACTIONS (25)
  - Speech disorder [Recovering/Resolving]
  - Tachycardia [Recovering/Resolving]
  - Dyskinesia [Recovering/Resolving]
  - Neuroleptic malignant syndrome [Recovering/Resolving]
  - Decerebrate posture [Recovering/Resolving]
  - Opisthotonus [Recovering/Resolving]
  - Mental status changes [Recovering/Resolving]
  - Unresponsive to stimuli [Recovering/Resolving]
  - Dysarthria [Recovering/Resolving]
  - Disorientation [Recovering/Resolving]
  - Constipation [Recovering/Resolving]
  - Gait disturbance [Recovering/Resolving]
  - Dysphagia [Recovering/Resolving]
  - Confusional state [Recovering/Resolving]
  - Chills [Recovering/Resolving]
  - Hyperhidrosis [Recovering/Resolving]
  - Electroencephalogram abnormal [Recovering/Resolving]
  - Cerebral disorder [Recovering/Resolving]
  - Tachypnoea [Recovering/Resolving]
  - Agitation [Recovering/Resolving]
  - Somnolence [Recovering/Resolving]
  - Myoclonus [Recovering/Resolving]
  - Muscle rigidity [Recovering/Resolving]
  - Salivary hypersecretion [Recovering/Resolving]
  - Tremor [Recovering/Resolving]
